FAERS Safety Report 5385004-7 (Version None)
Quarter: 2007Q3

REPORT INFORMATION
  Report Type: 
  Country: None (occurrence: None)
  Receive Date: 20070712
  Receipt Date: 20070704
  Transmission Date: 20080115
  Serious: Yes (Other)
  Sender: FDA-Public Use
  Company Number: PHNU2007DE02416

PATIENT
  Sex: Male

DRUGS (2)
  1. DICLOFENAC SODIUM [Suspect]
     Indication: BACK PAIN
     Route: 030
  2. SANDIMMUNE [Suspect]
     Indication: RENAL TRANSPLANT
     Dates: start: 19920101

REACTIONS (1)
  - FACE OEDEMA [None]
